FAERS Safety Report 6102669-2 (Version None)
Quarter: 2009Q1

REPORT INFORMATION
  Report Type: 
  Country: None (occurrence: None)
  Receive Date: 20090304
  Receipt Date: 20090121
  Transmission Date: 20090719
  Serious: Yes (Other)
  Sender: FDA-Public Use
  Company Number: A0759913A

PATIENT
  Age: 65 Year
  Sex: Male
  Weight: 126.5 kg

DRUGS (5)
  1. REQUIP [Suspect]
     Indication: PARKINSON'S DISEASE
     Route: 048
     Dates: start: 20060802, end: 20060912
  2. PROVIGIL [Concomitant]
  3. LIPITOR [Concomitant]
  4. LORAZEPAM [Concomitant]
  5. LEVITRA [Concomitant]

REACTIONS (2)
  - DRUG INEFFECTIVE [None]
  - PARKINSON'S DISEASE [None]
